FAERS Safety Report 7389090-4 (Version None)
Quarter: 2011Q2

REPORT INFORMATION
  Report Type: 
  Country: None (occurrence: None)
  Receive Date: 20110401
  Receipt Date: 20110328
  Transmission Date: 20111010
  Serious: Yes (Other)
  Sender: FDA-Public Use
  Company Number: GB-SANOFI-AVENTIS-2011SA019066

PATIENT
  Sex: Male

DRUGS (4)
  1. CODEINE PHOSPHATE [Concomitant]
  2. INSPRA [Concomitant]
  3. CLEXANE [Suspect]
     Indication: THROMBOSIS PROPHYLAXIS
     Route: 058
  4. PANADOL [Concomitant]

REACTIONS (1)
  - HALLUCINATION [None]
